FAERS Safety Report 25553984 (Version 1)
Quarter: 2025Q3

REPORT INFORMATION
  Report Type: Report from Study
  Country: US (occurrence: US)
  Receive Date: 20250715
  Receipt Date: 20250715
  Transmission Date: 20251020
  Serious: Yes (Other)
  Sender: RANBAXY
  Company Number: US-SUN PHARMACEUTICAL INDUSTRIES LTD-2025R1-516528

PATIENT
  Age: 31 Year
  Sex: Female

DRUGS (1)
  1. CARBIDOPA AND LEVODOPA [Suspect]
     Active Substance: CARBIDOPA\LEVODOPA
     Indication: Parkinson^s disease
     Dosage: 25/100 MG
     Route: 065

REACTIONS (5)
  - Foetal heart rate deceleration abnormality [Unknown]
  - Postpartum haemorrhage [Unknown]
  - Cervical dilatation [Unknown]
  - Exposure during pregnancy [Unknown]
  - Live birth [Unknown]
